FAERS Safety Report 8344708-4 (Version None)
Quarter: 2012Q2

REPORT INFORMATION
  Report Type: 
  Country: None (occurrence: None)
  Receive Date: 20120508
  Receipt Date: 20120503
  Transmission Date: 20120825
  Serious: Yes (Other)
  Sender: FDA-Public Use
  Company Number: IT-ROCHE-1065950

PATIENT

DRUGS (4)
  1. AVASTIN [Suspect]
     Dates: start: 20100506
  2. AVASTIN [Suspect]
     Indication: PRODUCT USED FOR UNKNOWN INDICATION
     Dates: start: 20081124, end: 20090318
  3. ELOXATIN [Concomitant]
  4. FLUOROURACIL [Concomitant]

REACTIONS (1)
  - ANKLE FRACTURE [None]
